FAERS Safety Report 7422814-6 (Version None)
Quarter: 2011Q2

REPORT INFORMATION
  Report Type: 
  Country: None (occurrence: None)
  Receive Date: 20110419
  Receipt Date: 20091211
  Transmission Date: 20111010
  Serious: Yes (Death, Other)
  Sender: FDA-Public Use
  Company Number: US-BAYER-2011-006793

PATIENT

DRUGS (1)
  1. TRASYLOL [Suspect]
     Indication: PRODUCT USED FOR UNKNOWN INDICATION

REACTIONS (8)
  - NERVOUSNESS [None]
  - RENAL FAILURE [None]
  - DEATH [None]
  - FEAR OF DEATH [None]
  - ANXIETY [None]
  - EMOTIONAL DISTRESS [None]
  - INJURY [None]
  - DEPRESSION [None]
